FAERS Safety Report 5906681-5 (Version None)
Quarter: 2008Q3

REPORT INFORMATION
  Report Type: 
  Country: None (occurrence: None)
  Receive Date: 20080930
  Receipt Date: 20080917
  Transmission Date: 20090109
  Serious: Yes (Death)
  Sender: FDA-Public Use
  Company Number: 004262

PATIENT
  Age: 80 Year
  Sex: Male
  Weight: 70 kg

DRUGS (6)
  1. PLETAL [Suspect]
     Indication: CEREBRAL INFARCTION
     Dosage: 100 MG, BID , ORAL
     Route: 048
     Dates: start: 20080702, end: 20080903
  2. DILTIAZEM HYDROCHLORIDE [Suspect]
     Indication: HYPERTENSION
     Dates: start: 20080903, end: 20080903
  3. RADICUT (EDARAVONE) INJECTION [Concomitant]
  4. RECOGNAN (CITICOLINE) INJECTION [Concomitant]
  5. OMEPRAL (OMEPRAZOLE SODIUM) INJECTION [Concomitant]
  6. ALEVIATIN (PHENYTOIN SODIUM) INJECTION [Concomitant]

REACTIONS (8)
  - BLOOD PRESSURE INCREASED [None]
  - BRAIN INJURY [None]
  - BRAIN STEM HAEMORRHAGE [None]
  - CARDIAC ARREST [None]
  - DEPRESSED LEVEL OF CONSCIOUSNESS [None]
  - INTRACRANIAL PRESSURE INCREASED [None]
  - PUPILS UNEQUAL [None]
  - THALAMUS HAEMORRHAGE [None]
